FAERS Safety Report 7005035-0 (Version None)
Quarter: 2010Q3

REPORT INFORMATION
  Report Type: 
  Country: None (occurrence: None)
  Receive Date: 20100921
  Receipt Date: 20100910
  Transmission Date: 20110219
  Serious: Yes (Other)
  Sender: FDA-Public Use
  Company Number: US-BAXTER-2010BH023431

PATIENT
  Sex: Male

DRUGS (1)
  1. GAMMAGARD LIQUID [Suspect]
     Indication: PRODUCT USED FOR UNKNOWN INDICATION
     Route: 042
     Dates: start: 20100909

REACTIONS (5)
  - INFUSION SITE ERYTHEMA [None]
  - MUSCLE TIGHTNESS [None]
  - NODULE [None]
  - TENDERNESS [None]
  - VEIN DISORDER [None]
